FAERS Safety Report 8886257 (Version 1)
Quarter: 2012Q4

REPORT INFORMATION
  Report Type: 
  Country: GR (occurrence: GR)
  Receive Date: 20121105
  Receipt Date: 20121105
  Transmission Date: 20130627
  Serious: Yes (Death)
  Sender: FDA-Public Use
  Company Number: GR-ASTRAZENECA-2012SE83104

PATIENT
  Age: 60 Year
  Sex: Male

DRUGS (3)
  1. QUETIAPINE [Suspect]
     Indication: SCHIZOPHRENIA
     Route: 048
  2. AMISULPRIDE [Concomitant]
  3. LORAZEPAM [Concomitant]

REACTIONS (2)
  - Overdose [Fatal]
  - Cardiac arrest [Fatal]
